FAERS Safety Report 10438149 (Version 2)
Quarter: 2014Q3

REPORT INFORMATION
  Report Type: Spontaneous
  Country: US (occurrence: US)
  Receive Date: 20140908
  Receipt Date: 20140908
  Transmission Date: 20150326
  Serious: Yes (Life-Threatening, Hospitalization, Other)
  Sender: FDA-Public Use
  Company Number: US-BRISTOL-MYERS SQUIBB COMPANY-20557872

PATIENT
  Age: 69 Year
  Sex: Female
  Weight: 58.05 kg

DRUGS (16)
  1. TRAZODONE HYDROCHLORIDE. [Concomitant]
     Active Substance: TRAZODONE HYDROCHLORIDE
     Indication: DEPRESSION
     Dosage: TAKE 1 TABLET AT BED TIME
     Route: 048
     Dates: start: 20110705
  2. VENLAFAXINE HCL [Concomitant]
     Active Substance: VENLAFAXINE HYDROCHLORIDE
     Indication: DEPRESSION
     Dosage: TAKE 1 TABLET 2 DAIY WITH MEALS
     Route: 048
     Dates: start: 20110705
  3. CLOPIDOGREL BISULFATE. [Concomitant]
     Active Substance: CLOPIDOGREL BISULFATE
  4. ABILIFY [Suspect]
     Active Substance: ARIPIPRAZOLE
     Indication: DEPRESSION
     Dates: start: 1968
  5. MIRTAZAPINE. [Concomitant]
     Active Substance: MIRTAZAPINE
     Indication: DEPRESSION
     Dosage: TAKE ONE TABLET DAILY AT BED TIME.
     Route: 048
     Dates: start: 20110705
  6. CARVEDILOL. [Concomitant]
     Active Substance: CARVEDILOL
     Route: 048
     Dates: start: 20130716
  7. FUROSEMIDE. [Concomitant]
     Active Substance: FUROSEMIDE
     Dosage: TAKE 1 TABLET BY MOUTH ONCE DAILY
     Route: 048
     Dates: start: 20140225
  8. ATORVASTATIN CALCIUM. [Concomitant]
     Active Substance: ATORVASTATIN CALCIUM
     Indication: CORONARY ARTERY DISEASE
     Dosage: TAKE ONE TABLET DAILY AT BEDTIME
     Route: 048
     Dates: start: 20130709
  9. PLAVIX [Concomitant]
     Active Substance: CLOPIDOGREL BISULFATE
     Dosage: TAKE 1 TABLET DAILY
     Route: 048
     Dates: start: 20140210
  10. ATORVASTATIN CALCIUM. [Concomitant]
     Active Substance: ATORVASTATIN CALCIUM
     Indication: HYPERLIPIDAEMIA
     Dosage: TAKE ONE TABLET DAILY AT BEDTIME
     Route: 048
     Dates: start: 20130709
  11. LEVOTHYROXINE SODIUM. [Concomitant]
     Active Substance: LEVOTHYROXINE SODIUM
     Indication: HYPOTHYROIDISM
     Dosage: TAKE 1 TABLET BY MOUTH EVERY DAY
     Route: 048
     Dates: start: 20110705
  12. LATANOPROST. [Concomitant]
     Active Substance: LATANOPROST
     Route: 047
     Dates: start: 20130412
  13. CLONAZEPAM. [Concomitant]
     Active Substance: CLONAZEPAM
     Indication: ESSENTIAL HYPERTENSION
     Dosage: 1DF=1/2 TAB.?TAKE 1/2 TABLET 3 TIMES DAILY AS NEEDED;
     Route: 048
     Dates: start: 20110705
  14. DIVALPROEX SODIUM. [Concomitant]
     Active Substance: DIVALPROEX SODIUM
     Indication: ESSENTIAL HYPERTENSION
     Dosage: 2 TABS IN AM AND 1 TAB IN PM;
     Route: 048
     Dates: start: 20110705
  15. FAMOTIDINE TABS [Concomitant]
  16. COLCRYS [Concomitant]
     Active Substance: COLCHICINE
     Route: 048
     Dates: start: 20131003

REACTIONS (5)
  - Thinking abnormal [Unknown]
  - Depression [Unknown]
  - Myocardial infarction [Unknown]
  - Suicidal ideation [Unknown]
  - Cerebrovascular accident [Unknown]

NARRATIVE: CASE EVENT DATE: 1995
